FAERS Safety Report 6406571-8 (Version None)
Quarter: 2009Q4

REPORT INFORMATION
  Report Type: 
  Country: None (occurrence: None)
  Receive Date: 20091014
  Receipt Date: 20090123
  Transmission Date: 20100525
  Serious: No
  Sender: FDA-Public Use
  Company Number: 2009-GWUS-0040

PATIENT
  Age: 55 Year
  Sex: Female

DRUGS (4)
  1. METROGEL-VAGINAL [Suspect]
     Indication: FUNGAL INFECTION
     Dosage: APPLICATION - QD - VAGINAL
     Route: 067
     Dates: start: 20090101, end: 20090117
  2. METROGEL-VAGINAL [Suspect]
     Indication: PRURITUS
     Dosage: APPLICATION - QD - VAGINAL
     Route: 067
     Dates: start: 20090101, end: 20090117
  3. DIPHENHYDRAMINE (BENADRYL) [Concomitant]
  4. DOXYLAMINE (UNISOM) [Concomitant]

REACTIONS (1)
  - DRUG INEFFECTIVE [None]
